FAERS Safety Report 19438272 (Version 3)
Quarter: 2021Q3

REPORT INFORMATION
  Report Type: Spontaneous
  Country: LK (occurrence: LK)
  Receive Date: 20210618
  Receipt Date: 20210730
  Transmission Date: 20211014
  Serious: Yes (Death)
  Sender: FDA-Public Use
  Company Number: LK-PFIZER INC-2021675786

PATIENT

DRUGS (2)
  1. MERONEM [Suspect]
     Active Substance: MEROPENEM
     Indication: SEPSIS NEONATAL
     Dosage: 500 MG (MAXIMUM DOSE)
     Route: 042
  2. MERONEM [Suspect]
     Active Substance: MEROPENEM
     Indication: BACTERIAL INFECTION

REACTIONS (3)
  - Off label use [Unknown]
  - Death neonatal [Fatal]
  - Drug ineffective [Unknown]
